FAERS Safety Report 7577670-2 (Version None)
Quarter: 2011Q2

REPORT INFORMATION
  Report Type: 
  Country: None (occurrence: None)
  Receive Date: 20110628
  Receipt Date: 20110614
  Transmission Date: 20111010
  Serious: Yes (Hospitalization)
  Sender: FDA-Public Use
  Company Number: US-PFIZER INC-2011103144

PATIENT
  Sex: Female

DRUGS (8)
  1. AZOR [Suspect]
     Indication: HYPERTENSION
     Dosage: 5/20 MG, 1X/DAY
     Route: 048
     Dates: start: 20110401, end: 20110501
  2. CENTRUM SILVER [Concomitant]
     Indication: VITAMIN SUPPLEMENTATION
     Dosage: UNK
  3. BENICAR [Suspect]
     Indication: HYPERTENSION
     Dosage: 20 MG, 1X/DAY
     Route: 048
     Dates: end: 20110401
  4. BENICAR [Suspect]
     Dosage: 20 MG, 1X/DAY
     Route: 048
     Dates: start: 20110101
  5. CALCIUM [Concomitant]
     Dosage: UNK
  6. AZOR [Suspect]
     Dosage: 5/20MG, 1X/DAY
     Route: 048
     Dates: start: 20110501
  7. PREPARATION H HEMORRHOIDAL SUPPOSITORIES [Suspect]
     Indication: HAEMORRHOIDS
     Dosage: UNK
     Route: 054
     Dates: start: 20110610
  8. AZOR [Suspect]
     Dosage: 2.5/10MG, 1X/DAY
     Route: 048
     Dates: start: 20110502, end: 20110501

REACTIONS (11)
  - DRUG ADMINISTRATION ERROR [None]
  - HYPOTENSION [None]
  - CONSTIPATION [None]
  - DIZZINESS [None]
  - FALL [None]
  - OEDEMA PERIPHERAL [None]
  - BONE PAIN [None]
  - BLOOD PRESSURE FLUCTUATION [None]
  - BALANCE DISORDER [None]
  - ASTHENIA [None]
  - NAUSEA [None]
